FAERS Safety Report 9807575 (Version 1)
Quarter: 2014Q1

REPORT INFORMATION
  Report Type: Spontaneous
  Country: US (occurrence: US)
  Receive Date: 20140110
  Receipt Date: 20140110
  Transmission Date: 20141002
  Serious: No
  Sender: FDA-Public Use
  Company Number: US-SANOFI-AVENTIS-2013SA041074

PATIENT
  Sex: Female

DRUGS (5)
  1. PLAVIX [Suspect]
     Indication: TRANSIENT ISCHAEMIC ATTACK
     Route: 048
     Dates: start: 2005
  2. CLOPIDOGREL BISULFATE [Suspect]
     Dates: start: 2012
  3. GLUCOSAMINE [Concomitant]
  4. CHONDROITIN SULFATE [Concomitant]
  5. ACETAMINOPHEN [Concomitant]

REACTIONS (2)
  - Contusion [Not Recovered/Not Resolved]
  - Scar [Not Recovered/Not Resolved]
